FAERS Safety Report 7788107-2 (Version None)
Quarter: 2011Q3

REPORT INFORMATION
  Report Type: 
  Country: None (occurrence: None)
  Receive Date: 20110929
  Receipt Date: 20110929
  Transmission Date: 20111222
  Serious: No
  Sender: FDA-Public Use
  Company Number: None

PATIENT
  Age: 68 Year
  Sex: Male

DRUGS (1)
  1. VORICONAZOLE [Suspect]
     Indication: HYPERTROPHY
     Dosage: 500MG Q12 HOURS X 2 DAYS IVPB
     Route: 042
     Dates: start: 20110829

REACTIONS (1)
  - VISUAL IMPAIRMENT [None]
